FAERS Safety Report 5442438-X (Version None)
Quarter: 2007Q3

REPORT INFORMATION
  Report Type: 
  Country: None (occurrence: None)
  Receive Date: 20070830
  Receipt Date: 20070816
  Transmission Date: 20080115
  Serious: Yes (Disabling)
  Sender: FDA-Public Use
  Company Number: POMP-11120

PATIENT
  Age: 34 Year
  Sex: Female
  Weight: 92 kg

DRUGS (7)
  1. MYOZYME [Suspect]
     Indication: GLYCOGEN STORAGE DISEASE TYPE II
     Dosage: 20 MG/KG Q2WKS IV
     Route: 042
     Dates: start: 20070105
  2. ALPHA-GLUCOSIDASE (HUMAN, RECOMBINANT, CHO CELLS, GENZYME) [Suspect]
     Indication: GLYCOGEN STORAGE DISEASE TYPE II
     Dosage: 20 MG/KG Q2WKS IV
     Route: 042
     Dates: start: 20051202, end: 20061117
  3. SINGULAIR [Concomitant]
  4. OTHO TRICYCLEN [Concomitant]
  5. PAXIL [Concomitant]
  6. PLACEBO [Suspect]
  7. ALPHA-GLUCOSIDASE (HUMAN, RECOMBINANT, CHO CELLS, GENZYME) [Suspect]

REACTIONS (3)
  - DISEASE PROGRESSION [None]
  - GAIT DISTURBANCE [None]
  - GLYCOGEN STORAGE DISEASE TYPE II [None]
